FAERS Safety Report 8549603-3 (Version None)
Quarter: 2012Q3

REPORT INFORMATION
  Report Type: 
  Country: None (occurrence: None)
  Receive Date: 20120720
  Receipt Date: 20120720
  Transmission Date: 20120928
  Serious: No
  Sender: FDA-Public Use
  Company Number: None

PATIENT
  Age: 66 Year
  Sex: Male
  Weight: 65.4 kg

DRUGS (1)
  1. AMIODARONE HCL [Suspect]
     Dosage: 200 MG EVERY DAY PO
     Route: 048
     Dates: start: 20120102, end: 20120402

REACTIONS (3)
  - RESPIRATORY FAILURE [None]
  - PYREXIA [None]
  - TOXICITY TO VARIOUS AGENTS [None]
